FAERS Safety Report 5981779-4 (Version None)
Quarter: 2008Q4

REPORT INFORMATION
  Report Type: 
  Country: None (occurrence: None)
  Receive Date: 20081205
  Receipt Date: 20081202
  Transmission Date: 20090506
  Serious: Yes (Other)
  Sender: FDA-Public Use
  Company Number: US-B.I. PHARMACEUTICALS,INC./RIDGEFIELD-2008-BP-12013BP

PATIENT
  Sex: Female

DRUGS (4)
  1. CATAPRES-TTS-1 [Suspect]
     Indication: HYPERTENSION
     Dosage: .2MG
     Route: 061
     Dates: start: 20080601
  2. CARDIZEM LA [Concomitant]
     Indication: HYPERTENSION
  3. ALTACE [Concomitant]
     Indication: HYPERTENSION
  4. TOPROL-XL [Concomitant]
     Indication: HYPERTENSION

REACTIONS (6)
  - APPLICATION SITE RASH [None]
  - APPLICATION SITE VESICLES [None]
  - BLOOD PRESSURE INADEQUATELY CONTROLLED [None]
  - DERMATITIS CONTACT [None]
  - HYPERSENSITIVITY [None]
  - NEOPLASM [None]
